FAERS Safety Report 8096615-2 (Version None)
Quarter: 2012Q1

REPORT INFORMATION
  Report Type: 
  Country: None (occurrence: None)
  Receive Date: 20120129
  Receipt Date: 20111202
  Transmission Date: 20120608
  Serious: No
  Sender: FDA-Public Use
  Company Number: US-ABBOTT-11P-163-0880025-00

PATIENT
  Sex: Female
  Weight: 58.112 kg

DRUGS (4)
  1. HUMIRA [Suspect]
     Indication: CROHN'S DISEASE
     Dosage: 160 MG LOADING DOSE
     Route: 058
     Dates: start: 20111129, end: 20111129
  2. GABAPENTIN [Concomitant]
     Indication: PAIN
     Dosage: AT BEDTIME
  3. HUMIRA [Suspect]
     Indication: ARTHRITIS ENTEROPATHIC
  4. GABAPENTIN [Concomitant]
     Indication: SLEEP DISORDER

REACTIONS (4)
  - ARTHRALGIA [None]
  - SINUS CONGESTION [None]
  - FEELING ABNORMAL [None]
  - HEADACHE [None]
